FAERS Safety Report 12779575 (Version 3)
Quarter: 2016Q4

REPORT INFORMATION
  Report Type: Spontaneous
  Country: US (occurrence: US)
  Receive Date: 20160926
  Receipt Date: 20161003
  Transmission Date: 20170207
  Serious: Yes (Life-Threatening, Other)
  Sender: FDA-Public Use
  Company Number: PHHY2016US128075

PATIENT
  Age: 40 Year
  Sex: Male

DRUGS (4)
  1. LISINOPRIL. [Concomitant]
     Active Substance: LISINOPRIL
     Indication: PRODUCT USED FOR UNKNOWN INDICATION
     Dosage: 2.5 MG, QD
     Route: 065
  2. METFORMIN [Suspect]
     Active Substance: METFORMIN HYDROCHLORIDE
     Indication: TYPE 2 DIABETES MELLITUS
     Dosage: UNK
     Route: 065
  3. ROSUVASTATIN. [Concomitant]
     Active Substance: ROSUVASTATIN
     Indication: PRODUCT USED FOR UNKNOWN INDICATION
     Dosage: 20 MG, QD
     Route: 065
  4. TRIAMCINOLONE [Concomitant]
     Active Substance: TRIAMCINOLONE
     Indication: PSORIASIS
     Dosage: 0.1 %, UNK
     Route: 061

REACTIONS (16)
  - Drug reaction with eosinophilia and systemic symptoms [Recovering/Resolving]
  - Pruritus generalised [Recovering/Resolving]
  - Exfoliative rash [Recovered/Resolved]
  - Skin plaque [Recovered/Resolved]
  - Eosinophilia [Recovering/Resolving]
  - Onycholysis [Recovered/Resolved]
  - Superinfection bacterial [Unknown]
  - Fatigue [Recovering/Resolving]
  - Rash [Recovered/Resolved]
  - Lymphadenopathy [Recovered/Resolved]
  - Secretion discharge [Recovered/Resolved]
  - Papule [Recovered/Resolved]
  - Staphylococcal infection [Unknown]
  - Rash pruritic [Recovered/Resolved]
  - Rash erythematous [Recovered/Resolved]
  - Purpura [Recovered/Resolved]
